FAERS Safety Report 19996651 (Version 1)
Quarter: 2021Q4

REPORT INFORMATION
  Report Type: Spontaneous
  Country: MX (occurrence: MX)
  Receive Date: 20211026
  Receipt Date: 20211026
  Transmission Date: 20220303
  Serious: Yes (Other)
  Sender: FDA-Public Use
  Company Number: MX-BAYER-2021A236465

PATIENT
  Age: 63 Year
  Sex: Male

DRUGS (6)
  1. STIVARGA [Suspect]
     Active Substance: REGORAFENIB
     Indication: Rectal cancer
     Dosage: DAILY DOSE 160 MG
     Dates: start: 201608
  2. STIVARGA [Suspect]
     Active Substance: REGORAFENIB
     Indication: Rectal cancer
     Dosage: DAILY DOSE 160 MG
     Dates: start: 201609, end: 201610
  3. STIVARGA [Suspect]
     Active Substance: REGORAFENIB
     Indication: Rectal cancer
     Dosage: DAILY DOSE 160 MG
     Dates: start: 201610
  4. STIVARGA [Suspect]
     Active Substance: REGORAFENIB
     Indication: Rectal cancer
     Dosage: DAILY DOSE 120 MG
     Dates: start: 201611
  5. STIVARGA [Suspect]
     Active Substance: REGORAFENIB
     Indication: Rectal cancer
     Dosage: DAILY DOSE 120 MG
     Dates: start: 201612
  6. STIVARGA [Suspect]
     Active Substance: REGORAFENIB
     Indication: Rectal cancer
     Dosage: DAILY DOSE 120 MG
     Dates: start: 201701

REACTIONS (10)
  - Carcinoembryonic antigen increased [None]
  - Mucosal inflammation [None]
  - Fatigue [None]
  - Diarrhoea [None]
  - Blood bilirubin increased [None]
  - Decreased appetite [None]
  - Weight decreased [None]
  - Fatigue [None]
  - Mucosal inflammation [None]
  - Diarrhoea [None]
